FAERS Safety Report 4761242-9 (Version None)
Quarter: 2005Q3

REPORT INFORMATION
  Report Type: 
  Country: None (occurrence: None)
  Receive Date: 20050901
  Receipt Date: 20050816
  Transmission Date: 20060218
  Serious: Yes (Hospitalization)
  Sender: FDA-Public Use
  Company Number: 217261

PATIENT
  Age: 58 Year
  Sex: Female
  Weight: 75.5 kg

DRUGS (14)
  1. AVASTIN [Suspect]
     Indication: COLORECTAL CANCER METASTATIC
     Dosage: 375 MG, Q2W, INTRAVENOUS
     Route: 042
     Dates: start: 20050518
  2. OXALIPLATIN (OXALIPLATIN) [Suspect]
     Indication: COLORECTAL CANCER METASTATIC
     Dosage: 150 MG, Q2W,
     Dates: start: 20050516
  3. LEUCOVORIN CALCIUM [Suspect]
     Indication: COLORECTAL CANCER METASTATIC
     Dosage: 710 MG, Q2W,
     Dates: start: 20050516
  4. FLUOROURACIL [Suspect]
     Indication: COLORECTAL CANCER METASTATIC
     Dosage: 5000 MG, Q2W, INTRAVENOUS
     Route: 042
     Dates: start: 20050516
  5. ONDANSETRON (ONDANSETRON) [Concomitant]
  6. DEXAMETHASONE [Concomitant]
  7. MOTILIUM [Concomitant]
  8. CYCLIZINE (CYCLIZINE) [Concomitant]
  9. ATENOLOL [Concomitant]
  10. CENTYL K (BENDROFLUMETHIAZIDE, POTASSIUM CHLORIDE) [Concomitant]
  11. LACTULOSE [Concomitant]
  12. SENNA (SENNA) [Concomitant]
  13. LANSOPRAZOLE [Concomitant]
  14. TEMAZEPAM [Concomitant]

REACTIONS (20)
  - ALANINE AMINOTRANSFERASE INCREASED [None]
  - BLOOD ALKALINE PHOSPHATASE INCREASED [None]
  - BLOOD BILIRUBIN INCREASED [None]
  - BLOOD CREATININE INCREASED [None]
  - BLOOD PHOSPHORUS DECREASED [None]
  - BLOOD SODIUM DECREASED [None]
  - CHILLS [None]
  - ERYTHEMA [None]
  - FEELING COLD [None]
  - GAMMA-GLUTAMYLTRANSFERASE INCREASED [None]
  - HEADACHE [None]
  - HYPERTENSION [None]
  - NEUTROPHIL COUNT ABNORMAL [None]
  - PLATELET COUNT DECREASED [None]
  - PROTEIN URINE [None]
  - PYREXIA [None]
  - SEPSIS [None]
  - URINE ANALYSIS ABNORMAL [None]
  - URINE LEUKOCYTE ESTERASE POSITIVE [None]
  - VOMITING [None]
